FAERS Safety Report 5567428-8 (Version None)
Quarter: 2007Q4

REPORT INFORMATION
  Report Type: 
  Country: None (occurrence: None)
  Receive Date: 20071214
  Receipt Date: 20071207
  Transmission Date: 20080405
  Serious: Yes (Life-Threatening, Hospitalization)
  Sender: FDA-Public Use
  Company Number: TPG2007A00779

PATIENT
  Sex: Female

DRUGS (2)
  1. COMPETACT [Suspect]
     Indication: DRUG USE FOR UNKNOWN INDICATION
     Dosage: 15 MG PIOGLITAZONE AND 850 MG METFORMIN
     Route: 048
  2. ANTIBIOTICS [Concomitant]

REACTIONS (3)
  - HAEMATOMA [None]
  - INFECTION [None]
  - THROMBOCYTOPENIA [None]
